FAERS Safety Report 13257372 (Version 2)
Quarter: 2020Q3

REPORT INFORMATION
  Report Type: Spontaneous
  Country: US (occurrence: US)
  Receive Date: 20170221
  Receipt Date: 20200820
  Transmission Date: 20201102
  Serious: Yes (Hospitalization, Other)
  Sender: FDA-Public Use
  Company Number: US-ELI_LILLY_AND_COMPANY-US201702006807

PATIENT
  Age: 43 Year
  Sex: Male

DRUGS (5)
  1. ESCITALOPRAM [Concomitant]
     Active Substance: ESCITALOPRAM OXALATE
     Indication: PRODUCT USED FOR UNKNOWN INDICATION
     Dosage: 20 MG, UNKNOWN
     Route: 065
  2. TESTOSTERONE. [Suspect]
     Active Substance: TESTOSTERONE
     Indication: SUBSTANCE USE
     Dosage: UNK, INTERMITTENTLY OVER A PERIOD OF 5 YEARS
     Route: 065
  3. TESTOSTERONE. [Interacting]
     Active Substance: TESTOSTERONE
     Indication: MUSCLE BUILDING THERAPY
  4. TRENBOLONE [Interacting]
     Active Substance: TRENBOLONE
     Indication: SUBSTANCE USE
     Dosage: UNK, INTERMITTENTLY OVER A PERIOD OF 5 YEARS
     Route: 051
  5. TRENBOLONE [Interacting]
     Active Substance: TRENBOLONE
     Indication: MUSCLE BUILDING THERAPY

REACTIONS (4)
  - Renal infarct [Recovering/Resolving]
  - Acute kidney injury [Recovering/Resolving]
  - Intentional product misuse [Recovering/Resolving]
  - Drug interaction [Unknown]
